FAERS Safety Report 6069335-3 (Version None)
Quarter: 2009Q1

REPORT INFORMATION
  Report Type: 
  Country: None (occurrence: None)
  Receive Date: 20090206
  Receipt Date: 20090130
  Transmission Date: 20090719
  Serious: Yes (Hospitalization, Other)
  Sender: FDA-Public Use
  Company Number: US-PFIZER INC-2009163587

PATIENT
  Age: 75 Year
  Sex: Female

DRUGS (2)
  1. LYRICA [Suspect]
  2. NEURONTIN [Concomitant]

REACTIONS (4)
  - CATARACT OPERATION [None]
  - CEREBROVASCULAR ACCIDENT [None]
  - DIPLOPIA [None]
  - JOINT SWELLING [None]
